FAERS Safety Report 8231716-7 (Version None)
Quarter: 2012Q1

REPORT INFORMATION
  Report Type: 
  Country: None (occurrence: None)
  Receive Date: 20120323
  Receipt Date: 20120320
  Transmission Date: 20120608
  Serious: Yes (Other)
  Sender: FDA-Public Use
  Company Number: US-PFIZER INC-2011087480

PATIENT
  Sex: Female
  Weight: 95.238 kg

DRUGS (11)
  1. CHANTIX [Interacting]
     Dosage: UNK
     Route: 048
     Dates: start: 20120217
  2. POTASSIUM [Concomitant]
     Indication: BLOOD POTASSIUM DECREASED
     Dosage: 20 MEQ, DAILY
  3. IRON SUPPLEMENT [Concomitant]
     Indication: ANAEMIA
     Dosage: UNK
  4. CHANTIX [Interacting]
     Dosage: 0.5 MG, 1X/DAY
     Route: 048
     Dates: start: 20110701, end: 20110701
  5. RAMIPRIL [Concomitant]
     Indication: HYPERTENSION
     Dosage: 5 MG, DAILY
  6. HYDROCHLOROTHIAZIDE [Concomitant]
     Indication: HYPERTENSION
     Dosage: 25 MG, DAILY
  7. CHANTIX [Suspect]
     Indication: SMOKING CESSATION THERAPY
     Dosage: 0.5 MG, 1X/DAY
     Route: 048
     Dates: start: 20110401, end: 20110101
  8. CHANTIX [Interacting]
     Dosage: UNK
     Route: 048
     Dates: start: 20110101, end: 20110101
  9. CHANTIX [Interacting]
     Dosage: 1 MG, 2X/DAY
     Route: 048
     Dates: start: 20110701, end: 20111101
  10. TOPAMAX [Interacting]
     Indication: BIPOLAR DISORDER
     Dosage: 25 MG, 2X/DAY
     Route: 048
  11. CLONIDINE [Concomitant]
     Indication: HYPERTENSION
     Dosage: 0.1 MG, DAILY

REACTIONS (5)
  - DRUG INEFFECTIVE [None]
  - HEPATIC ENZYME INCREASED [None]
  - MANIA [None]
  - ANXIETY [None]
  - DRUG INTERACTION [None]
